FAERS Safety Report 19184039 (Version 1)
Quarter: 2021Q2

REPORT INFORMATION
  Report Type: Report from Study
  Country: TW (occurrence: TW)
  Receive Date: 20210427
  Receipt Date: 20210427
  Transmission Date: 20210717
  Serious: Yes (Other)
  Sender: FDA-Public Use
  Company Number: NVSC2021TW087349

PATIENT
  Age: 32 Year
  Sex: Male

DRUGS (1)
  1. COSENTYX [Suspect]
     Active Substance: SECUKINUMAB
     Indication: PSORIASIS
     Dosage: 300 MG (AS REQUIRED)
     Route: 058
     Dates: start: 20200425

REACTIONS (8)
  - Blister [Unknown]
  - Psoriatic arthropathy [Unknown]
  - Pain of skin [Unknown]
  - Lymphocyte count decreased [Unknown]
  - Rash erythematous [Unknown]
  - Mean cell haemoglobin concentration increased [Unknown]
  - Dyshidrotic eczema [Unknown]
  - Folliculitis [Unknown]

NARRATIVE: CASE EVENT DATE: 20200618
